FAERS Safety Report 8547537 (Version 4)
Quarter: 2014Q2

REPORT INFORMATION
  Report Type: Spontaneous
  Country: US (occurrence: US)
  Receive Date: 20120504
  Receipt Date: 20140404
  Transmission Date: 20141212
  Serious: Yes (Hospitalization)
  Sender: FDA-Public Use
  Company Number: US-B.I. PHARMACEUTICALS,INC./RIDGEFIELD-2012-BP-09779BP

PATIENT
  Age: 71 Year
  Sex: Male
  Weight: 91 kg

DRUGS (4)
  1. PRADAXA [Suspect]
     Indication: ATRIAL FIBRILLATION
     Dosage: 300 MG
     Route: 048
     Dates: start: 20110812, end: 20111123
  2. PRADAXA [Suspect]
     Indication: ANTICOAGULANT THERAPY
  3. UNSPECIFIED ANTIHYPERTENSIVE [Suspect]
     Indication: HYPERTENSION
     Route: 065
  4. CRESTOR [Concomitant]
     Dosage: 40 MG
     Route: 065

REACTIONS (3)
  - Haemorrhage intracranial [Recovered/Resolved with Sequelae]
  - Hypertensive emergency [Unknown]
  - Fatigue [Not Recovered/Not Resolved]
